FAERS Safety Report 5419899-5 (Version None)
Quarter: 2007Q3

REPORT INFORMATION
  Report Type: 
  Country: None (occurrence: None)
  Receive Date: 20070820
  Receipt Date: 20070808
  Transmission Date: 20080115
  Serious: Yes (Other)
  Sender: FDA-Public Use
  Company Number: CA-PFIZER INC-2007063372

PATIENT
  Sex: Male

DRUGS (4)
  1. DEPO-TESTOSTERONE [Suspect]
     Indication: ANDROGEN DEFICIENCY
  2. CESAMET [Concomitant]
     Dosage: TEXT:0.5 MG
  3. TRAMADOL HYDROCHLORIDE AND ACETAMINOPHEN [Concomitant]
     Dosage: TEXT:37.5MG/ 325MG
  4. ACETAMINOPHEN AND OXYCODONE HCL [Concomitant]

REACTIONS (1)
  - DRUG ABUSER [None]
